FAERS Safety Report 4311595-0 (Version None)
Quarter: 2004Q1

REPORT INFORMATION
  Report Type: 
  Country: None (occurrence: None)
  Receive Date: 20040303
  Receipt Date: 20040303
  Transmission Date: 20041129
  Serious: Yes (Other)
  Sender: FDA-Public Use
  Company Number: None

PATIENT
  Sex: Female
  Weight: 58.9676 kg

DRUGS (2)
  1. ZOLOFT [Suspect]
     Indication: ANXIETY
     Dosage: 75 MG ONCE NIGHT
     Dates: start: 20030418, end: 20031210
  2. ZOLOFT [Suspect]
     Indication: BIPOLAR I DISORDER
     Dosage: 75 MG ONCE NIGHT
     Dates: start: 20030418, end: 20031210

REACTIONS (6)
  - DIZZINESS [None]
  - DYSPNOEA [None]
  - HOT FLUSH [None]
  - MOOD SWINGS [None]
  - THINKING ABNORMAL [None]
  - WEIGHT INCREASED [None]
